FAERS Safety Report 9067200 (Version 1)
Quarter: 2013Q1

REPORT INFORMATION
  Report Type: Report from Study
  Country: US (occurrence: US)
  Receive Date: 20130201
  Receipt Date: 20130201
  Transmission Date: 20140127
  Serious: No
  Sender: FDA-Public Use
  Company Number: US-ABBOTT-12P-163-1028620-00

PATIENT
  Age: 56 Year
  Sex: Male

DRUGS (13)
  1. HUMIRA [Suspect]
     Indication: CROHN^S DISEASE
     Dates: start: 2010
  2. SIMVASTATIN [Concomitant]
     Indication: BLOOD CHOLESTEROL INCREASED
     Dosage: DAILY
  3. BUDEPRION [Concomitant]
     Indication: DEPRESSION
     Dosage: DAILY
  4. FLOMAX [Concomitant]
     Indication: BENIGN PROSTATIC HYPERPLASIA
     Dosage: DAILY
  5. LOTREL [Concomitant]
     Indication: HYPERTENSION
     Dosage: 10-20 MG DAILY
  6. TRAZODONE [Concomitant]
     Indication: PRODUCT USED FOR UNKNOWN INDICATION
     Dosage: DAILY
  7. CYMBALTA [Concomitant]
     Indication: DEPRESSION
     Dosage: DAILY
  8. PENTASA [Concomitant]
     Indication: CROHN^S DISEASE
     Dosage: DAILY
  9. MULTIVITAMIN [Concomitant]
     Indication: PRODUCT USED FOR UNKNOWN INDICATION
     Dosage: DAILY
  10. GINSENG [Concomitant]
     Indication: PRODUCT USED FOR UNKNOWN INDICATION
  11. K OIL [Concomitant]
     Indication: PRODUCT USED FOR UNKNOWN INDICATION
  12. UBIQUINOL [Concomitant]
     Indication: ROUTINE HEALTH MAINTENANCE
     Dosage: DAILY
  13. PROBIOTICS [Concomitant]
     Indication: PRODUCT USED FOR UNKNOWN INDICATION
     Dosage: DAILY

REACTIONS (1)
  - Injection site pain [Recovered/Resolved]
